FAERS Safety Report 6754089-5 (Version None)
Quarter: 2010Q2

REPORT INFORMATION
  Report Type: 
  Country: None (occurrence: None)
  Receive Date: 20100601
  Receipt Date: 20100518
  Transmission Date: 20101027
  Serious: Yes (Hospitalization)
  Sender: FDA-Public Use
  Company Number: DSM-2010-00737

PATIENT
  Age: 81 Year
  Sex: Male

DRUGS (9)
  1. OLMESARTAN MEDOXOMIL [Suspect]
     Indication: HYPERTENSION
     Dosage: 10 MG, ORAL
     Route: 048
     Dates: start: 20080101, end: 20100226
  2. CARDURAN NEO (DOXAZOSIN MESILATE) (DOXAZOSIN MESILATE) [Suspect]
     Indication: HYPERTENSION
     Dosage: 8 MG, ORAL
     Route: 048
     Dates: start: 20080101, end: 20100226
  3. FUROSEMIDE [Suspect]
     Indication: HYPERTENSION
     Dosage: 40 MG
  4. BIPRETERAX (INDAPAMIDE, PERINDORPIL ERBUMINE) (INDAPAMIDE, PERINDOPRIL [Suspect]
     Indication: DRUG USE FOR UNKNOWN INDICATION
     Dosage: 4/1.25 MG
  5. OMEPRAZOLE [Concomitant]
  6. SIMVASTATIN [Concomitant]
  7. ADIRO (ACETYLSALICYLIC ACID) (ACETYLSALICYLIC ACID) [Concomitant]
  8. LORMETAZEPAM (LORMETAZEPAM) (LORMETAZEPAM) [Concomitant]
  9. OMNIC (TAMSULOSIN HYDROCHLORIDE) (TAMSULOSIN HYDROCHLORIDE) [Concomitant]

REACTIONS (3)
  - DIZZINESS [None]
  - DRUG INTERACTION [None]
  - HYPOTENSION [None]
